FAERS Safety Report 18724183 (Version 1)
Quarter: 2021Q1

REPORT INFORMATION
  Report Type: Spontaneous
  Country: US (occurrence: US)
  Receive Date: 20210111
  Receipt Date: 20210111
  Transmission Date: 20210419
  Serious: Yes (Hospitalization, Other)
  Sender: FDA-Public Use
  Company Number: US-FRESENIUS KABI-FK202100280

PATIENT
  Age: 59 Year
  Sex: Female

DRUGS (2)
  1. DOXORUBICIN (MANUFACTURER UNKNOWN) [Suspect]
     Active Substance: DOXORUBICIN
     Indication: ENDOMETRIAL SARCOMA
     Dosage: 7 CYCLE
     Route: 065
     Dates: start: 201711
  2. OLARATUMAB [Suspect]
     Active Substance: OLARATUMAB
     Indication: ENDOMETRIAL SARCOMA
     Dosage: 7 CYCLE
     Route: 065
     Dates: start: 201711

REACTIONS (1)
  - Pneumothorax [Unknown]

NARRATIVE: CASE EVENT DATE: 201801
